FAERS Safety Report 6092295-6 (Version None)
Quarter: 2009Q1

REPORT INFORMATION
  Report Type: 
  Country: None (occurrence: None)
  Receive Date: 20090225
  Receipt Date: 20090218
  Transmission Date: 20090719
  Serious: Yes (Hospitalization)
  Sender: FDA-Public Use
  Company Number: B0559236A

PATIENT
  Age: 29 Year
  Sex: Female

DRUGS (6)
  1. RELENZA [Suspect]
     Indication: INFLUENZA
     Dosage: 10MG TWICE PER DAY
     Route: 055
     Dates: start: 20090205, end: 20090206
  2. UNKNOWN DRUG [Suspect]
     Indication: INFLUENZA
     Route: 048
     Dates: start: 20090205, end: 20090206
  3. HUSTAZOL [Concomitant]
     Route: 048
  4. LYSOZYME HYDROCHLORIDE [Concomitant]
  5. HISPORAN [Concomitant]
     Route: 048
  6. IBUPROFEN [Concomitant]

REACTIONS (5)
  - ABNORMAL BEHAVIOUR [None]
  - DIARRHOEA [None]
  - DISORIENTATION [None]
  - ENCEPHALITIS [None]
  - MENINGITIS [None]
